FAERS Safety Report 6385594-1 (Version None)
Quarter: 2009Q4

REPORT INFORMATION
  Report Type: 
  Country: None (occurrence: None)
  Receive Date: 20091002
  Receipt Date: 20090922
  Transmission Date: 20100525
  Serious: Yes (Other)
  Sender: FDA-Public Use
  Company Number: US-PFIZER INC-2009260081

PATIENT
  Sex: Female

DRUGS (3)
  1. LYRICA [Suspect]
     Indication: BACK PAIN
     Dosage: UNK
     Dates: start: 20070101
  2. LYRICA [Suspect]
     Indication: FIBROMYALGIA
  3. ATENOLOL [Concomitant]
     Dosage: UNK

REACTIONS (2)
  - SCAR [None]
  - SKIN LESION [None]
